FAERS Safety Report 14909367 (Version 1)
Quarter: 2018Q2

REPORT INFORMATION
  Report Type: Spontaneous
  Country: US (occurrence: US)
  Receive Date: 20180517
  Receipt Date: 20180517
  Transmission Date: 20180711
  Serious: Yes (Death)
  Sender: FDA-Public Use
  Company Number: US-INCYTE CORPORATION-2018IN004762

PATIENT

DRUGS (1)
  1. JAKAFI [Suspect]
     Active Substance: RUXOLITINIB
     Dosage: 15 MG, 3X/WEEK
     Route: 048
     Dates: start: 20170313, end: 20180323

REACTIONS (3)
  - Fall [Fatal]
  - Inappropriate schedule of drug administration [Unknown]
  - Neck injury [Fatal]

NARRATIVE: CASE EVENT DATE: 20170313
